FAERS Safety Report 5631845-8 (Version None)
Quarter: 2008Q1

REPORT INFORMATION
  Report Type: 
  Country: None (occurrence: None)
  Receive Date: 20080212
  Receipt Date: 20080201
  Transmission Date: 20080703
  Serious: Yes (Death)
  Sender: FDA-Public Use
  Company Number: 2008SP002494

PATIENT
  Age: 54 Year
  Sex: Male
  Weight: 70 kg

DRUGS (11)
  1. TEMODAL [Suspect]
     Indication: ANAPLASTIC ASTROCYTOMA
     Dosage: 150 MG/M2;QD;PO; 200 MG/M2;QD;PO
     Route: 048
     Dates: start: 20061125, end: 20061129
  2. TEMODAL [Suspect]
     Indication: ANAPLASTIC ASTROCYTOMA
     Dosage: 150 MG/M2;QD;PO; 200 MG/M2;QD;PO
     Route: 048
     Dates: start: 20061222, end: 20061226
  3. TEMODAL [Suspect]
     Indication: ANAPLASTIC ASTROCYTOMA
     Dosage: 150 MG/M2;QD;PO; 200 MG/M2;QD;PO
     Route: 048
     Dates: start: 20070119, end: 20070123
  4. TEMODAL [Suspect]
     Indication: ANAPLASTIC ASTROCYTOMA
     Dosage: 150 MG/M2;QD;PO; 200 MG/M2;QD;PO
     Route: 048
     Dates: start: 20070216, end: 20070220
  5. TEMODAL [Suspect]
     Indication: ANAPLASTIC ASTROCYTOMA
     Dosage: 150 MG/M2;QD;PO; 200 MG/M2;QD;PO
     Route: 048
     Dates: start: 20070316, end: 20070320
  6. PHENOBARBITAL TAB [Concomitant]
  7. ALEVIATIN [Concomitant]
     Indication: RECURRENT CANCER
  8. GASTER D [Concomitant]
  9. BETAMETHASONE [Concomitant]
  10. MAGNESIUM OXIDE [Concomitant]
  11. POLLAKISU [Concomitant]

REACTIONS (6)
  - BRAIN NEOPLASM [None]
  - MALIGNANT NEOPLASM PROGRESSION [None]
  - OEDEMA PERIPHERAL [None]
  - PARALYSIS [None]
  - PULMONARY EMBOLISM [None]
  - SUDDEN DEATH [None]
